FAERS Safety Report 23410265 (Version 1)
Quarter: 2024Q1

REPORT INFORMATION
  Report Type: Spontaneous
  Country: CA (occurrence: CA)
  Receive Date: 20240117
  Receipt Date: 20240117
  Transmission Date: 20240409
  Serious: Yes (Other)
  Sender: FDA-Public Use
  Company Number: CA-AMGEN-CANSP2024005167

PATIENT
  Age: 52 Year
  Sex: Female
  Weight: 73 kg

DRUGS (6)
  1. ADALIMUMAB [Suspect]
     Active Substance: ADALIMUMAB\ISOPROPYL ALCOHOL
     Indication: Product used for unknown indication
     Dosage: UNK
     Route: 065
  2. CIMZIA [Suspect]
     Active Substance: CERTOLIZUMAB PEGOL
     Indication: Product used for unknown indication
     Route: 065
  3. HUMIRA [Suspect]
     Active Substance: ADALIMUMAB
     Indication: Product used for unknown indication
     Route: 058
  4. METHOTREXATE [Suspect]
     Active Substance: METHOTREXATE
     Indication: Ankylosing spondylitis
     Dosage: 1.0 DOSAGE FORM
     Route: 065
  5. RINVOQ [Suspect]
     Active Substance: UPADACITINIB
     Indication: Product used for unknown indication
     Route: 048
  6. STELARA [Suspect]
     Active Substance: USTEKINUMAB
     Indication: Product used for unknown indication
     Route: 065

REACTIONS (29)
  - Drug intolerance [Unknown]
  - Drug intolerance [Unknown]
  - Drug intolerance [Unknown]
  - Drug intolerance [Unknown]
  - Drug intolerance [Unknown]
  - Drug intolerance [Unknown]
  - Drug ineffective [Unknown]
  - Drug ineffective [Unknown]
  - Drug ineffective [Unknown]
  - Drug ineffective [Unknown]
  - Drug ineffective [Unknown]
  - General symptom [Unknown]
  - Lacrimation increased [Unknown]
  - Loss of personal independence in daily activities [Unknown]
  - Plantar fasciitis [Unknown]
  - Dry eye [Unknown]
  - Asthenia [Unknown]
  - Diarrhoea [Unknown]
  - Fatigue [Unknown]
  - Therapeutic product effect incomplete [Unknown]
  - Pelvic pain [Unknown]
  - Pain in extremity [Unknown]
  - Pain in extremity [Unknown]
  - Synovitis [Unknown]
  - Tendonitis [Unknown]
  - Inflammation [Unknown]
  - Psoriasis [Unknown]
  - Oedema [Unknown]
  - Abdominal pain [Unknown]
